FAERS Safety Report 14107519 (Version 1)
Quarter: 2017Q4

REPORT INFORMATION
  Report Type: Spontaneous
  Country: JP (occurrence: JP)
  Receive Date: 20171019
  Receipt Date: 20171019
  Transmission Date: 20180321
  Serious: Yes (Hospitalization, Other)
  Sender: FDA-Public Use
  Company Number: JP-PFIZER INC-2017440165

PATIENT

DRUGS (1)
  1. SALAZOPYRIN 500MG [Suspect]
     Active Substance: SULFASALAZINE
     Dosage: 1000 MG, 4X/DAY (IN THE MORNING, NOON, EVENING AND BEFORE BEDTIME)
     Route: 048

REACTIONS (9)
  - Anaemia [Unknown]
  - Decreased appetite [Unknown]
  - Drug eruption [Recovered/Resolved]
  - Stress [Recovered/Resolved]
  - Muscle spasms [Unknown]
  - Condition aggravated [Unknown]
  - Rectal haemorrhage [Unknown]
  - Melaena [Unknown]
  - Large intestine perforation [Unknown]
